FAERS Safety Report 12704163 (Version 1)
Quarter: 2016Q3

REPORT INFORMATION
  Report Type: Spontaneous
  Country: GB (occurrence: GB)
  Receive Date: 20160831
  Receipt Date: 20160831
  Transmission Date: 20161109
  Serious: Yes (Other)
  Sender: FDA-Public Use
  Company Number: GB-PFIZER INC-2016356066

PATIENT
  Age: 30 Year
  Sex: Female

DRUGS (2)
  1. LIDOCAINE. [Suspect]
     Active Substance: LIDOCAINE
     Indication: EPIDURAL ANAESTHESIA
     Dosage: UNK, (MIXTURE OF 20 ML 2% LIDOCAINE AND 100 MCG FENTANYL)
     Route: 008
  2. FENTANYL. [Suspect]
     Active Substance: FENTANYL
     Indication: EPIDURAL ANAESTHESIA
     Dosage: UNK,(MIXTURE OF 20 ML 2% LIDOCAINE AND 100 MCG FENTANYL)
     Route: 008

REACTIONS (3)
  - Anaphylactic reaction [Recovering/Resolving]
  - Overdose [Recovering/Resolving]
  - Anaesthetic complication [Recovering/Resolving]
